FAERS Safety Report 21816592 (Version 1)
Quarter: 2023Q1

REPORT INFORMATION
  Report Type: Spontaneous
  Country: US (occurrence: None)
  Receive Date: 20230104
  Receipt Date: 20230104
  Transmission Date: 20230417
  Serious: Yes (Hospitalization)
  Sender: FDA-Public Use
  Company Number: None

PATIENT
  Age: 62 Year
  Sex: Female
  Weight: 135.08 kg

DRUGS (14)
  1. ALECENSA [Suspect]
     Active Substance: ALECTINIB HYDROCHLORIDE
     Indication: Lung neoplasm malignant
     Dosage: FREQUENCY : TWICE A DAY;?
     Route: 048
  2. ALBUTEROL [Concomitant]
     Active Substance: ALBUTEROL
  3. ATIVAN [Concomitant]
     Active Substance: LORAZEPAM
  4. CARAFATE [Concomitant]
     Active Substance: SUCRALFATE
  5. FERROUS SULFATE [Concomitant]
     Active Substance: FERROUS SULFATE
  6. GABAPENTIN [Concomitant]
     Active Substance: GABAPENTIN
  7. NORCO [Concomitant]
     Active Substance: ACETAMINOPHEN\HYDROCODONE BITARTRATE
  8. LASIX [Concomitant]
     Active Substance: FUROSEMIDE
  9. LIPITOR [Concomitant]
     Active Substance: ATORVASTATIN CALCIUM
  10. MIRALAX [Concomitant]
     Active Substance: POLYETHYLENE GLYCOL 3350
  11. PEPCID [Concomitant]
     Active Substance: FAMOTIDINE
  12. SINGULAIR [Concomitant]
     Active Substance: MONTELUKAST SODIUM
  13. XARELTO [Concomitant]
     Active Substance: RIVAROXABAN
  14. ZOFRAN [Concomitant]
     Active Substance: ONDANSETRON HYDROCHLORIDE

REACTIONS (2)
  - Renal impairment [None]
  - Blood test abnormal [None]
